FAERS Safety Report 9400952 (Version 1)
Quarter: 2013Q3

REPORT INFORMATION
  Report Type: Spontaneous
  Country: GR (occurrence: GR)
  Receive Date: 20130715
  Receipt Date: 20130715
  Transmission Date: 20140515
  Serious: Yes (Other)
  Sender: FDA-Public Use
  Company Number: GR-ACTAVIS-2013-12052

PATIENT
  Age: 63 Year
  Sex: Female

DRUGS (4)
  1. ESCITALOPRAM (UNKNOWN) [Suspect]
     Indication: OBSESSIVE-COMPULSIVE DISORDER
     Dosage: 60 MG, DAILY
     Route: 065
  2. ESCITALOPRAM (UNKNOWN) [Suspect]
     Dosage: 40 MG, DAILY
     Route: 065
  3. FLUOXETINE HYDROCHLORIDE (UNKNOWN) [Suspect]
     Indication: OBSESSIVE-COMPULSIVE DISORDER
     Dosage: 40 MG, DAILY
     Route: 065
  4. FLUOXETINE HYDROCHLORIDE (UNKNOWN) [Suspect]
     Dosage: 60 MG, DAILY
     Route: 065

REACTIONS (3)
  - Bruxism [Recovering/Resolving]
  - Toothache [Unknown]
  - Headache [Unknown]
